FAERS Safety Report 8283199-9 (Version None)
Quarter: 2012Q1

REPORT INFORMATION
  Report Type: 
  Country: None (occurrence: None)
  Receive Date: 20120323
  Receipt Date: 20120315
  Transmission Date: 20120608
  Serious: Yes (Other)
  Sender: FDA-Public Use
  Company Number: 2012031345

PATIENT
  Age: 78 Year
  Sex: Female
  Weight: 47.1741 kg

DRUGS (14)
  1. CEFUROXIME [Concomitant]
  2. TOPAMAX [Concomitant]
  3. CALCIUM CARBONATE [Concomitant]
  4. ALBUTEROL [Concomitant]
  5. SYMBICORT [Concomitant]
  6. NASONEX [Concomitant]
  7. HIZENTRA [Suspect]
  8. HIZENTRA [Suspect]
     Indication: IMMUNODEFICIENCY COMMON VARIABLE
     Dosage: SEE IMAGE
     Route: 058
     Dates: start: 20120218, end: 20120218
  9. HIZENTRA [Suspect]
     Indication: IMMUNODEFICIENCY COMMON VARIABLE
     Dosage: SEE IMAGE
     Route: 058
     Dates: start: 20120204
  10. HIZENTRA [Suspect]
     Indication: IMMUNODEFICIENCY COMMON VARIABLE
     Dosage: SEE IMAGE
     Route: 058
     Dates: start: 20120218, end: 20120218
  11. HIZENTRA [Suspect]
     Indication: IMMUNODEFICIENCY COMMON VARIABLE
     Dosage: SEE IMAGE
     Route: 058
     Dates: start: 20120211
  12. HIZENTRA [Suspect]
     Indication: IMMUNODEFICIENCY COMMON VARIABLE
     Dosage: SEE IMAGE
     Route: 058
     Dates: start: 20110208
  13. ACETAMINOPHEN [Concomitant]
  14. ACETONEL (RISEDRONATE SODIUM) [Concomitant]

REACTIONS (1)
  - SINUSITIS [None]
